FAERS Safety Report 10025933 (Version 2)
Quarter: 2014Q4

REPORT INFORMATION
  Report Type: Spontaneous
  Country: AU (occurrence: None)
  Receive Date: 20140314
  Receipt Date: 20141128
  Transmission Date: 20150528
  Serious: Yes (Hospitalization, Other)
  Sender: FDA-Public Use
  Company Number: 1403-0504

PATIENT
  Age: 86 Year
  Sex: Female

DRUGS (1)
  1. EYLEA [Suspect]
     Active Substance: AFLIBERCEPT
     Indication: AGE-RELATED MACULAR DEGENERATION
     Dosage: INJECTION EVERY 8 WEEKS IN LEFT EYE (APPROX. 5 INJECTIONS)
     Dates: start: 2013

REACTIONS (5)
  - Sedation [None]
  - Cataract operation complication [None]
  - Implant site reaction [None]
  - Vision blurred [None]
  - Depression [None]

NARRATIVE: CASE EVENT DATE: 201312
